FAERS Safety Report 6264203-6 (Version None)
Quarter: 2009Q3

REPORT INFORMATION
  Report Type: 
  Country: None (occurrence: None)
  Receive Date: 20090706
  Receipt Date: 20090423
  Transmission Date: 20100115
  Serious: Yes (Other)
  Sender: FDA-Public Use
  Company Number: 629872

PATIENT
  Sex: Female

DRUGS (2)
  1. CELLCEPT [Suspect]
     Indication: UVEITIS
     Dates: start: 20090221, end: 20090421
  2. LIPITOR [Concomitant]

REACTIONS (1)
  - HEPATOTOXICITY [None]
